FAERS Safety Report 18776849 (Version 1)
Quarter: 2021Q1

REPORT INFORMATION
  Report Type: Spontaneous
  Country: DE (occurrence: DE)
  Receive Date: 20210122
  Receipt Date: 20210122
  Transmission Date: 20210419
  Serious: Yes (Other)
  Sender: FDA-Public Use
  Company Number: DE-BAYER-2021-029111

PATIENT
  Age: 47 Year
  Sex: Female
  Weight: 47 kg

DRUGS (1)
  1. MIRENA [Suspect]
     Active Substance: LEVONORGESTREL
     Indication: INTRAUTERINE CONTRACEPTION
     Dosage: 20 ?G PER DAY, CONTINUOUSLY
     Route: 015
     Dates: start: 20180723, end: 20201207

REACTIONS (2)
  - Invasive lobular breast carcinoma [Not Recovered/Not Resolved]
  - Breast mass [Unknown]

NARRATIVE: CASE EVENT DATE: 201812
